FAERS Safety Report 18779640 (Version 1)
Quarter: 2021Q1

REPORT INFORMATION
  Report Type: Spontaneous
  Country: US (occurrence: US)
  Receive Date: 20210125
  Receipt Date: 20210125
  Transmission Date: 20210419
  Serious: No
  Sender: FDA-Public Use
  Company Number: US-BEH-2021127544

PATIENT
  Sex: Female

DRUGS (1)
  1. HIZENTRA [Suspect]
     Active Substance: HUMAN IMMUNOGLOBULIN G
     Indication: HUMORAL IMMUNE DEFECT
     Dosage: 5 GRAM, QW
     Route: 058
     Dates: start: 201701

REACTIONS (4)
  - Pruritus [Unknown]
  - Infection [Unknown]
  - Ill-defined disorder [Unknown]
  - Headache [Unknown]
